FAERS Safety Report 26002299 (Version 1)
Quarter: 2025Q4

REPORT INFORMATION
  Report Type: Spontaneous
  Country: GB (occurrence: GB)
  Receive Date: 20251105
  Receipt Date: 20251105
  Transmission Date: 20260117
  Serious: Yes (Congenital Anomaly, Other)
  Sender: ABBVIE
  Company Number: None

PATIENT
  Age: 38 Year
  Weight: 61 kg

DRUGS (1)
  1. MESALAMINE [Suspect]
     Active Substance: MESALAMINE
     Indication: Colitis ulcerative
     Dosage: 1G PER NIGHT
     Route: 065

REACTIONS (1)
  - Ductus arteriosus premature closure [Not Recovered/Not Resolved]

NARRATIVE: CASE EVENT DATE: 20251027
